FAERS Safety Report 5220679-4 (Version None)
Quarter: 2007Q1

REPORT INFORMATION
  Report Type: 
  Country: None (occurrence: None)
  Receive Date: 20070126
  Receipt Date: 20070112
  Transmission Date: 20070707
  Serious: Yes (Other)
  Sender: FDA-Public Use
  Company Number: PHHO2007BR01039

PATIENT
  Age: 54 Year
  Sex: Female

DRUGS (1)
  1. TEGRETOL [Suspect]
     Indication: EPILEPSY
     Dosage: 400MG
     Route: 048

REACTIONS (6)
  - CONVULSION [None]
  - HEAD DISCOMFORT [None]
  - HYPERTENSION [None]
  - LOSS OF CONSCIOUSNESS [None]
  - SYNCOPE [None]
  - WEIGHT INCREASED [None]
